FAERS Safety Report 21112869 (Version 6)
Quarter: 2024Q4

REPORT INFORMATION
  Report Type: Report from Study
  Country: US (occurrence: US)
  Receive Date: 20220721
  Receipt Date: 20241018
  Transmission Date: 20250114
  Serious: No
  Sender: NOVARTIS
  Company Number: US-NOVARTISTESTPH-NVSC2022US165199

PATIENT
  Age: 58 Year
  Sex: Male

DRUGS (4)
  1. ENTRESTO [Suspect]
     Active Substance: SACUBITRIL\VALSARTAN
     Indication: Cardiac failure
     Dosage: 1 DOSAGE FORM, BID (24/26MG)
     Route: 048
     Dates: start: 202206
  2. ENTRESTO [Suspect]
     Active Substance: SACUBITRIL\VALSARTAN
     Dosage: 1 DOSAGE FORM, BID (24/26MG)
     Route: 048
  3. AMMONIUM CHLORIDE\CAFFEINE [Suspect]
     Active Substance: AMMONIUM CHLORIDE\CAFFEINE
     Indication: Product used for unknown indication
     Dosage: UNK
     Route: 065
  4. ALDACTONE [Concomitant]
     Active Substance: SPIRONOLACTONE
     Indication: Product used for unknown indication
     Dosage: UNK
     Route: 065
     Dates: end: 20221127

REACTIONS (9)
  - Blood glucose fluctuation [Unknown]
  - Peripheral swelling [Unknown]
  - Weight fluctuation [Unknown]
  - Dyspnoea exertional [Unknown]
  - Joint stiffness [Unknown]
  - Feeling abnormal [Unknown]
  - Breast pain [Recovering/Resolving]
  - Breast tenderness [Unknown]
  - Nipple pain [Unknown]

NARRATIVE: CASE EVENT DATE: 20220601
